FAERS Safety Report 8694017 (Version 9)
Quarter: 2013Q4

REPORT INFORMATION
  Report Type: Report from Study
  Country: CA (occurrence: CA)
  Receive Date: 20120731
  Receipt Date: 20131007
  Transmission Date: 20140711
  Serious: Yes (Death, Hospitalization)
  Sender: FDA-Public Use
  Company Number: PHHY2012CA065374

PATIENT
  Age: 78 Year
  Sex: Female

DRUGS (2)
  1. SANDOSTATIN LAR [Suspect]
     Indication: NEUROENDOCRINE TUMOUR
     Dosage: 40 MG, QMO
     Route: 030
     Dates: start: 20120327
  2. SANDOSTATIN LAR [Suspect]
     Dosage: 40 MG, EVERY 4 WEEKS
     Route: 030
     Dates: end: 20130902

REACTIONS (13)
  - Death [Fatal]
  - Feeling abnormal [Unknown]
  - Aphagia [Recovering/Resolving]
  - Intestinal obstruction [Unknown]
  - Abdominal pain [Unknown]
  - Vomiting [Unknown]
  - Gastrointestinal sounds abnormal [Unknown]
  - Heart rate increased [Unknown]
  - Blood pressure systolic increased [Recovered/Resolved]
  - Memory impairment [Unknown]
  - Abdominal distension [Unknown]
  - Bowel movement irregularity [Unknown]
  - Diarrhoea [Unknown]
